FAERS Safety Report 21873511 (Version 1)
Quarter: 2023Q1

REPORT INFORMATION
  Report Type: Spontaneous
  Country: IE (occurrence: IE)
  Receive Date: 20230117
  Receipt Date: 20230117
  Transmission Date: 20230418
  Serious: Yes (Other)
  Sender: FDA-Public Use
  Company Number: IE-SAMSUNG BIOEPIS-SB-2022-26888

PATIENT
  Age: 30 Year
  Sex: Female

DRUGS (1)
  1. ADALIMUMAB [Suspect]
     Active Substance: ADALIMUMAB
     Indication: Hidradenitis
     Dosage: 40 MG, QW X 14/12 (SIC)
     Route: 058

REACTIONS (4)
  - Palmoplantar pustulosis [Recovered/Resolved]
  - Paradoxical drug reaction [Recovered/Resolved]
  - Pustular psoriasis [Recovered/Resolved]
  - Paradoxical psoriasis [Recovered/Resolved]
